FAERS Safety Report 20758660 (Version 1)
Quarter: 2022Q2

REPORT INFORMATION
  Report Type: Spontaneous
  Country: US (occurrence: US)
  Receive Date: 20220427
  Receipt Date: 20220427
  Transmission Date: 20220721
  Serious: No
  Sender: FDA-Public Use
  Company Number: US-PFIZER INC-202101383140

PATIENT
  Age: 39 Year
  Sex: Female
  Weight: 90.72 kg

DRUGS (1)
  1. CHANTIX [Suspect]
     Active Substance: VARENICLINE TARTRATE
     Indication: Smoking cessation therapy
     Dosage: 0.5 MG, 1X/DAY (FIRST WEEK 0.5 MG ORALLY ONE A DAY ONLY TOOK THREE)
     Route: 048
     Dates: start: 2021, end: 2021

REACTIONS (5)
  - Recalled product administered [Unknown]
  - Tobacco user [Not Recovered/Not Resolved]
  - Chest pain [Recovered/Resolved]
  - Respiratory disorder [Recovering/Resolving]
  - Cough [Recovering/Resolving]

NARRATIVE: CASE EVENT DATE: 20210101
